FAERS Safety Report 15882434 (Version 1)
Quarter: 2019Q1

REPORT INFORMATION
  Report Type: Spontaneous
  Country: US (occurrence: US)
  Receive Date: 20190129
  Receipt Date: 20190129
  Transmission Date: 20190417
  Serious: No
  Sender: FDA-Public Use
  Company Number: US-GLENMARK PHARMACEUTICALS-2018GMK038535

PATIENT

DRUGS (1)
  1. MUPIROCIN. [Suspect]
     Active Substance: MUPIROCIN
     Indication: PRODUCT USED FOR UNKNOWN INDICATION
     Dosage: UNK, SINGLE (ONCE)
     Route: 061
     Dates: start: 20181129, end: 20181129

REACTIONS (3)
  - Accidental exposure to product [Unknown]
  - Application site erythema [Not Recovered/Not Resolved]
  - Product appearance confusion [Unknown]
